FAERS Safety Report 23738170 (Version 1)
Quarter: 2024Q2

REPORT INFORMATION
  Report Type: Report from Study
  Country: TH (occurrence: None)
  Receive Date: 20240412
  Receipt Date: 20240412
  Transmission Date: 20240715
  Serious: Yes (Death, Hospitalization, Disabling)
  Sender: FDA-Public Use
  Company Number: 2022A289903

PATIENT
  Age: 746 Month
  Sex: Female

DRUGS (2)
  1. COVID-19 VACCINE NOS [Suspect]
     Active Substance: COVID-19 VACCINE NOS
     Dosage: DOSE1 ONCE/SINGLE ADMINISTRATION
     Route: 030
     Dates: start: 2021
  2. TAGRISSO [Suspect]
     Active Substance: OSIMERTINIB
     Indication: Non-small cell lung cancer metastatic
     Route: 048
     Dates: start: 202107, end: 202204

REACTIONS (14)
  - Drug resistance [Fatal]
  - Lower limb fracture [Fatal]
  - Skin mass [Fatal]
  - Dry skin [Fatal]
  - Rash [Fatal]
  - Back pain [Fatal]
  - Alopecia [Fatal]
  - Lung neoplasm malignant [Fatal]
  - Tumour marker abnormal [Fatal]
  - Neoplasm progression [Fatal]
  - Metastasis [Fatal]
  - Gait disturbance [Fatal]
  - Off label use [Fatal]
  - Pain [Recovered/Resolved]

NARRATIVE: CASE EVENT DATE: 20210701
